FAERS Safety Report 8543016-6 (Version None)
Quarter: 2012Q3

REPORT INFORMATION
  Report Type: 
  Country: None (occurrence: None)
  Receive Date: 20120727
  Receipt Date: 20120717
  Transmission Date: 20120928
  Serious: Yes (Other)
  Sender: FDA-Public Use
  Company Number: FR-JNJFOC-20120708427

PATIENT
  Age: 57 Year
  Sex: Female

DRUGS (4)
  1. TERCIAN [Concomitant]
     Route: 065
  2. REMICADE [Suspect]
     Indication: PSORIATIC ARTHROPATHY
     Dosage: 310 TO 350 MG
     Route: 042
     Dates: start: 20030101, end: 20070301
  3. ENBREL [Suspect]
     Indication: ANKYLOSING SPONDYLITIS
     Route: 058
     Dates: start: 20070401, end: 20120301
  4. CYMBALTA [Concomitant]
     Route: 065

REACTIONS (1)
  - BASAL CELL CARCINOMA [None]
